FAERS Safety Report 25967062 (Version 3)
Quarter: 2025Q4

REPORT INFORMATION
  Report Type: Report from Study
  Country: EU (occurrence: EU)
  Receive Date: 20251028
  Receipt Date: 20251107
  Transmission Date: 20260117
  Serious: Yes (Death, Hospitalization)
  Sender: ROCHE
  Company Number: EU-ML39632-2657441-1

PATIENT
  Age: 53 Year
  Sex: Female
  Weight: 61 kg

DRUGS (12)
  1. OCREVUS [Suspect]
     Active Substance: OCRELIZUMAB
     Indication: Relapsing multiple sclerosis
     Route: 042
     Dates: start: 20210720, end: 20210803
  2. OCREVUS [Suspect]
     Active Substance: OCRELIZUMAB
     Route: 042
     Dates: start: 20220125
  3. PROPIONIC ACID [Concomitant]
     Active Substance: PROPIONIC ACID
     Indication: Prophylaxis
     Route: 048
     Dates: start: 201810
  4. LEVOTHYROXINE [Concomitant]
     Active Substance: LEVOTHYROXINE
     Indication: Hypothyroidism
     Route: 048
     Dates: start: 2008
  5. GABAPENTIN [Concomitant]
     Active Substance: GABAPENTIN
     Route: 048
     Dates: start: 202208, end: 202404
  6. GABAPENTIN [Concomitant]
     Active Substance: GABAPENTIN
     Route: 048
     Dates: start: 202208, end: 202404
  7. GABAPENTIN [Concomitant]
     Active Substance: GABAPENTIN
     Route: 048
     Dates: start: 202404
  8. GABAPENTIN [Concomitant]
     Active Substance: GABAPENTIN
     Route: 048
     Dates: start: 201810, end: 202208
  9. VITAMIN B [Concomitant]
     Active Substance: VITAMIN B
     Indication: Nutritional supplementation
     Route: 048
     Dates: start: 2012
  10. VITAMIN D [Concomitant]
     Active Substance: VITAMIN D NOS
     Indication: Nutritional supplementation
     Route: 048
     Dates: start: 2012
  11. COVID-19 VACCINATION [Concomitant]
     Indication: Prophylaxis
     Route: 030
     Dates: start: 202110, end: 202110
  12. LACTOBACILLI [Concomitant]
     Indication: Prophylaxis
     Route: 048
     Dates: start: 201810

REACTIONS (3)
  - Tick-borne viral encephalitis [Fatal]
  - Thrombophlebitis [Fatal]
  - Status epilepticus [Fatal]

NARRATIVE: CASE EVENT DATE: 20250801
